FAERS Safety Report 12753042 (Version 2)
Quarter: 2016Q4

REPORT INFORMATION
  Report Type: Spontaneous
  Country: DE (occurrence: DE)
  Receive Date: 20160916
  Receipt Date: 20161026
  Transmission Date: 20170207
  Serious: Yes (Death)
  Sender: FDA-Public Use
  Company Number: DE-ROCHE-1830656

PATIENT
  Sex: Male
  Weight: 80 kg

DRUGS (1)
  1. CELLCEPT [Suspect]
     Active Substance: MYCOPHENOLATE MOFETIL\MYCOPHENOLATE MOFETIL HYDROCHLORIDE
     Indication: MYASTHENIA GRAVIS
     Route: 048
     Dates: start: 20111201, end: 201412

REACTIONS (2)
  - Off label use [Unknown]
  - Glioblastoma [Fatal]

NARRATIVE: CASE EVENT DATE: 20141210
